FAERS Safety Report 13153656 (Version 2)
Quarter: 2017Q1

REPORT INFORMATION
  Report Type: Spontaneous
  Country: US (occurrence: US)
  Receive Date: 20170126
  Receipt Date: 20170324
  Transmission Date: 20170428
  Serious: No
  Sender: FDA-Public Use
  Company Number: US-009507513-1701USA008465

PATIENT
  Sex: Female
  Weight: 106.58 kg

DRUGS (3)
  1. NEXPLANON [Suspect]
     Active Substance: ETONOGESTREL
     Indication: CONTRACEPTION
     Dosage: 68 MG (1 IMPLANT), CONTINUOUS
     Route: 058
     Dates: start: 20150708, end: 20170117
  2. MELOXICAM. [Concomitant]
     Active Substance: MELOXICAM
     Indication: PAIN
  3. MELOXICAM. [Concomitant]
     Active Substance: MELOXICAM
     Indication: RED BLOOD CELL SEDIMENTATION RATE INCREASED
     Dosage: 15 MG (1 TABLET), QD
     Route: 048
     Dates: start: 20161025

REACTIONS (1)
  - Weight increased [Recovered/Resolved]
